FAERS Safety Report 14207547 (Version 2)
Quarter: 2018Q1

REPORT INFORMATION
  Report Type: Spontaneous
  Country: US (occurrence: US)
  Receive Date: 20171121
  Receipt Date: 20180119
  Transmission Date: 20180508
  Serious: No
  Sender: FDA-Public Use
  Company Number: US-JNJFOC-20171118989

PATIENT
  Age: 27 Year
  Sex: Male
  Weight: 79.38 kg

DRUGS (2)
  1. INVEGA SUSTENNA [Suspect]
     Active Substance: PALIPERIDONE PALMITATE
     Indication: PSYCHOTIC DISORDER
     Route: 030
     Dates: start: 2015
  2. RISPERDAL [Suspect]
     Active Substance: RISPERIDONE
     Indication: PSYCHOTIC DISORDER
     Route: 048
     Dates: start: 201709, end: 201710

REACTIONS (3)
  - Drug dose omission [Unknown]
  - Muscle twitching [Recovering/Resolving]
  - Alcohol abuse [Unknown]

NARRATIVE: CASE EVENT DATE: 2017
